FAERS Safety Report 9638647 (Version 1)
Quarter: 2013Q4

REPORT INFORMATION
  Report Type: Spontaneous
  Country: US (occurrence: US)
  Receive Date: 20131022
  Receipt Date: 20131022
  Transmission Date: 20140711
  Serious: No
  Sender: FDA-Public Use
  Company Number: US-BRISTOL-MYERS SQUIBB COMPANY-19399047

PATIENT
  Age: 84 Year
  Sex: Female
  Weight: 74.83 kg

DRUGS (5)
  1. ELIQUIS [Suspect]
  2. POTASSIUM [Concomitant]
  3. LASIX [Concomitant]
  4. TEMAZEPAM [Concomitant]
     Indication: SLEEP DISORDER
  5. KENALOG [Concomitant]
     Indication: PSORIASIS

REACTIONS (3)
  - Pruritus generalised [Unknown]
  - Contusion [Unknown]
  - Laceration [Unknown]
